FAERS Safety Report 17532078 (Version 1)
Quarter: 2020Q1

REPORT INFORMATION
  Report Type: Spontaneous
  Country: US (occurrence: US)
  Receive Date: 20200312
  Receipt Date: 20200312
  Transmission Date: 20200409
  Serious: Yes (Other)
  Sender: FDA-Public Use
  Company Number: US-ELI_LILLY_AND_COMPANY-US202003002656

PATIENT
  Sex: Female

DRUGS (1)
  1. HUMATROPE [Suspect]
     Active Substance: SOMATROPIN
     Indication: BLOOD GROWTH HORMONE DECREASED
     Dosage: 1.2 MG, UNKNOWN
     Route: 065
     Dates: start: 2009

REACTIONS (3)
  - Neoplasm progression [Unknown]
  - Blood glucose increased [Unknown]
  - Fibroma [Unknown]

NARRATIVE: CASE EVENT DATE: 2018
